FAERS Safety Report 4862672-7 (Version None)
Quarter: 2005Q4

REPORT INFORMATION
  Report Type: 
  Country: None (occurrence: None)
  Receive Date: 20051221
  Receipt Date: 20050304
  Transmission Date: 20060501
  Serious: Yes (Hospitalization, Other)
  Sender: FDA-Public Use
  Company Number: US-MERCK-0503USA00937

PATIENT
  Age: 59 Year
  Sex: Female
  Weight: 89 kg

DRUGS (5)
  1. VIOXX [Suspect]
     Indication: ARTHRITIS
     Route: 048
     Dates: start: 20010403, end: 20040831
  2. ESTRADIOL [Concomitant]
     Route: 065
  3. ESTRADIOL [Concomitant]
     Route: 065
  4. PROMETRIUM [Concomitant]
     Route: 065
  5. OXYBUTYNIN [Concomitant]
     Route: 065

REACTIONS (7)
  - ANGINA PECTORIS [None]
  - CARPAL TUNNEL SYNDROME [None]
  - CATARACT [None]
  - CEREBROVASCULAR ACCIDENT [None]
  - JAW FRACTURE [None]
  - MYOCARDIAL INFARCTION [None]
  - SLEEP DISORDER [None]
